FAERS Safety Report 18088298 (Version 2)
Quarter: 2020Q3

REPORT INFORMATION
  Report Type: Report from Study
  Country: HN (occurrence: HN)
  Receive Date: 20200729
  Receipt Date: 20200806
  Transmission Date: 20201103
  Serious: Yes (Death)
  Sender: FDA-Public Use
  Company Number: NVSC2020HN211860

PATIENT
  Age: 64 Year
  Sex: Female
  Weight: 77.1 kg

DRUGS (3)
  1. VYMADA [Suspect]
     Active Substance: SACUBITRIL\VALSARTAN
     Indication: CARDIAC FAILURE
     Dosage: 100 MG, BID (1 TABLET IN MORNING AND 1 TABLET IN EVENING)
     Route: 048
     Dates: start: 2019, end: 20200617
  2. UROLOGIC G [Concomitant]
     Active Substance: CITRIC ACID MONOHYDRATE\MAGNESIUM OXIDE\SODIUM CARBONATE
     Indication: POLYURIA
     Dosage: 2 DF, BID
     Route: 048
     Dates: start: 201911, end: 20200617
  3. FUROSEMIDE. [Concomitant]
     Active Substance: FUROSEMIDE
     Indication: RENAL FAILURE
     Dosage: 2 DF, BID (2 TABLETS IN MORNING AND TWO TABLETS IN EVENING)
     Route: 048
     Dates: start: 2010, end: 20200617

REACTIONS (2)
  - Infarction [Fatal]
  - Fatigue [Unknown]

NARRATIVE: CASE EVENT DATE: 20200617
